FAERS Safety Report 18996288 (Version 1)
Quarter: 2021Q1

REPORT INFORMATION
  Report Type: Spontaneous
  Country: US (occurrence: US)
  Receive Date: 20210310
  Receipt Date: 20210310
  Transmission Date: 20210420
  Serious: Yes (Hospitalization)
  Sender: FDA-Public Use
  Company Number: None

PATIENT
  Age: 72 Year
  Sex: Male
  Weight: 102 kg

DRUGS (15)
  1. FERROUS SULFATE 325 MG [Concomitant]
  2. CAREVEDILOL 6.25 MG [Concomitant]
  3. LOSARTAN 50 MG [Concomitant]
     Active Substance: LOSARTAN
  4. SENNA 8.6 MG [Concomitant]
  5. NIFEDIPINE 90 MG ER [Concomitant]
  6. PREDNISONE 20 MG [Concomitant]
     Active Substance: PREDNISONE
  7. REPAGLINIDE 1 MG [Concomitant]
  8. AMLODIPINE 10 MG [Concomitant]
     Active Substance: AMLODIPINE BESYLATE
  9. METFORMIN [Concomitant]
     Active Substance: METFORMIN HYDROCHLORIDE
  10. CALCIUM ACETATE 667 MG [Concomitant]
     Active Substance: CALCIUM ACETATE
  11. MIRALAX [Concomitant]
     Active Substance: POLYETHYLENE GLYCOL 3350
  12. VITAMIN 2000 U [Concomitant]
  13. SEVELAMER CARBONATE 800 MG [Concomitant]
     Active Substance: SEVELAMER CARBONATE
  14. NUPLAZID [Suspect]
     Active Substance: PIMAVANSERIN TARTRATE
     Indication: PARKINSON^S DISEASE PSYCHOSIS
     Route: 048
     Dates: start: 20200916, end: 20210111
  15. FUROSEMIDE 20 MG [Concomitant]
     Active Substance: FUROSEMIDE

REACTIONS (9)
  - Renal failure [None]
  - Aphasia [None]
  - Parkinson^s disease [None]
  - Nosocomial infection [None]
  - Hepatic failure [None]
  - COVID-19 [None]
  - Disease progression [None]
  - Dysphagia [None]
  - Oxygen saturation decreased [None]

NARRATIVE: CASE EVENT DATE: 20210111
